FAERS Safety Report 11992802 (Version 1)
Quarter: 2016Q1

REPORT INFORMATION
  Report Type: Spontaneous
  Country: US (occurrence: US)
  Receive Date: 20160203
  Receipt Date: 20160203
  Transmission Date: 20160526
  Serious: No
  Sender: FDA-Public Use
  Company Number: US-UCBSA-2015024348

PATIENT
  Age: 32 Year
  Sex: Female

DRUGS (1)
  1. KEPPRA [Suspect]
     Active Substance: LEVETIRACETAM
     Indication: SEIZURE
     Dosage: 2500 MG, 2X/DAY (BID)

REACTIONS (3)
  - Drug ineffective [Unknown]
  - Overdose [Unknown]
  - Off label use [Unknown]
